FAERS Safety Report 7711693-5 (Version None)
Quarter: 2011Q3

REPORT INFORMATION
  Report Type: 
  Country: None (occurrence: None)
  Receive Date: 20110826
  Receipt Date: 20110818
  Transmission Date: 20111222
  Serious: Yes (Other)
  Sender: FDA-Public Use
  Company Number: DE-JNJFOC-20110700390

PATIENT
  Sex: Male
  Weight: 60 kg

DRUGS (2)
  1. CONCERTA [Suspect]
     Indication: ATTENTION DEFICIT/HYPERACTIVITY DISORDER
     Route: 048
  2. METHYLPHENIDATE HYDROCHLORIDE [Concomitant]
     Route: 065
     Dates: start: 20110622

REACTIONS (1)
  - CIRCULATORY COLLAPSE [None]
